FAERS Safety Report 12929145 (Version 2)
Quarter: 2017Q1

REPORT INFORMATION
  Report Type: Spontaneous
  Country: US (occurrence: US)
  Receive Date: 20161110
  Receipt Date: 20170104
  Transmission Date: 20170428
  Serious: Yes (Other)
  Sender: FDA-Public Use
  Company Number: US-PFIZER INC-2016517287

PATIENT
  Age: 65 Year
  Sex: Female

DRUGS (7)
  1. AFINITOR [Concomitant]
     Active Substance: EVEROLIMUS
     Dosage: 5 MG, DAILY
  2. LENVIMA [Concomitant]
     Active Substance: LENVATINIB
     Dosage: 18 UNK, UNK
     Dates: start: 20161013
  3. LENVIMA [Concomitant]
     Active Substance: LENVATINIB
     Dosage: 18 MG, DAILY [TAKE 10 MG TABLET AND TWO 4 MG TABLET]
     Route: 048
     Dates: start: 20161013
  4. FLUOCINONIDE. [Concomitant]
     Active Substance: FLUOCINONIDE
     Dosage: UNK
     Route: 061
  5. ASPIRIN. [Concomitant]
     Active Substance: ASPIRIN
     Dosage: 81 MG, UNK
  6. TORISEL [Suspect]
     Active Substance: TEMSIROLIMUS
     Indication: RENAL CANCER
     Dosage: UNK
     Dates: start: 20160427, end: 20160921
  7. AMLODIPINE [Concomitant]
     Active Substance: AMLODIPINE BESYLATE
     Dosage: 5 MG, DAILY
     Route: 048

REACTIONS (2)
  - Drug hypersensitivity [Unknown]
  - Pulmonary toxicity [Recovering/Resolving]
